FAERS Safety Report 14198844 (Version 1)
Quarter: 2017Q4

REPORT INFORMATION
  Report Type: Spontaneous
  Country: US (occurrence: US)
  Receive Date: 20171117
  Receipt Date: 20171117
  Transmission Date: 20180321
  Serious: No
  Sender: FDA-Public Use
  Company Number: US-PFIZER INC-2017495119

PATIENT
  Age: 17 Year
  Sex: Female
  Weight: 54.43 kg

DRUGS (2)
  1. LYRICA [Suspect]
     Active Substance: PREGABALIN
     Indication: FIBROMYALGIA
  2. LYRICA [Suspect]
     Active Substance: PREGABALIN
     Indication: AUTONOMIC NERVOUS SYSTEM IMBALANCE
     Dosage: 100 MG, 2X/DAY
     Route: 048

REACTIONS (2)
  - Fatigue [Unknown]
  - Drug ineffective [Unknown]
